FAERS Safety Report 11519966 (Version 1)
Quarter: 2015Q3

REPORT INFORMATION
  Report Type: Spontaneous
  Country: US (occurrence: US)
  Receive Date: 20150918
  Receipt Date: 20150918
  Transmission Date: 20151125
  Serious: No
  Sender: FDA-Public Use
  Company Number: US-RB-067985-14

PATIENT

DRUGS (1)
  1. MUCINEX [Suspect]
     Active Substance: GUAIFENESIN
     Indication: PRODUCT USED FOR UNKNOWN INDICATION
     Dosage: 600MG. PATIENT TOOK 2 TABLETS ON 10/AUG/2014 AND PATIENT IS NOW TAKING SECOND BOX OF MUCINEX 600 MG.
     Route: 065
     Dates: start: 20140810

REACTIONS (1)
  - Peripheral swelling [Not Recovered/Not Resolved]
